FAERS Safety Report 9156979 (Version 1)
Quarter: 2013Q1

REPORT INFORMATION
  Report Type: Spontaneous
  Country: IT (occurrence: None)
  Receive Date: 20130212
  Receipt Date: 20130212
  Transmission Date: 20140127
  Serious: Yes (Hospitalization)
  Sender: FDA-Public Use
  Company Number: KAD201302-000206

PATIENT
  Age: 61 Year
  Sex: Male

DRUGS (3)
  1. RIBAVIRIN (RIBAVIRIN) [Suspect]
     Indication: HEPATIC CIRRHOSIS
     Route: 048
     Dates: start: 20120213, end: 20121220
  2. INTERFERON ALFACON-1 (INTERFERON ALFACON-1) [Suspect]
     Indication: HEPATIC CIRRHOSIS
     Route: 058
     Dates: start: 20120213, end: 20121219
  3. OMEPRAZOLE [Concomitant]

REACTIONS (3)
  - Cough [None]
  - Dyspnoea [None]
  - Electrolyte imbalance [None]
